FAERS Safety Report 16731197 (Version 1)
Quarter: 2019Q4

REPORT INFORMATION
  Report Type: Spontaneous
  Country: US (occurrence: US)
  Receive Date: 20190822
  Receipt Date: 20190822
  Transmission Date: 20200122
  Serious: Yes (Hospitalization)
  Sender: FDA-Public Use
  Company Number: None

PATIENT
  Age: 27 Year
  Sex: Male

DRUGS (3)
  1. VITAMIN A [Concomitant]
     Active Substance: VITAMIN A
     Dates: start: 20190820
  2. STELARA [Suspect]
     Active Substance: USTEKINUMAB
     Indication: CROHN^S DISEASE
     Dosage: ?          OTHER FREQUENCY:EVERY 8 WEEKS;?
     Route: 058
     Dates: start: 20190628
  3. FOLIC ACID. [Concomitant]
     Active Substance: FOLIC ACID
     Dates: start: 20190626

REACTIONS (1)
  - Fistula [None]
